FAERS Safety Report 16769120 (Version 2)
Quarter: 2019Q3

REPORT INFORMATION
  Report Type: Spontaneous
  Country: US (occurrence: US)
  Receive Date: 20190903
  Receipt Date: 20190912
  Transmission Date: 20191005
  Serious: Yes (Other)
  Sender: FDA-Public Use
  Company Number: US-PFIZER INC-2019367755

PATIENT
  Age: 5 Year
  Sex: Female

DRUGS (4)
  1. SIROLIMUS. [Suspect]
     Active Substance: SIROLIMUS
     Dosage: UNK
     Dates: start: 201503
  2. SIROLIMUS. [Suspect]
     Active Substance: SIROLIMUS
     Dosage: UNK
     Dates: start: 201904, end: 201908
  3. SIROLIMUS. [Suspect]
     Active Substance: SIROLIMUS
     Indication: VASCULAR MALFORMATION
     Dosage: UNK
     Dates: start: 201404, end: 201410
  4. SIROLIMUS. [Suspect]
     Active Substance: SIROLIMUS
     Dosage: UNK
     Dates: start: 201706, end: 201807

REACTIONS (7)
  - Off label use [Unknown]
  - Drug ineffective [Unknown]
  - Mucosal inflammation [Unknown]
  - Product use in unapproved indication [Unknown]
  - Product use issue [Unknown]
  - Haemorrhage [Unknown]
  - Lymphorrhoea [Unknown]
